FAERS Safety Report 9172940 (Version 2)
Quarter: 2013Q2

REPORT INFORMATION
  Report Type: Report from Study
  Country: SE (occurrence: SE)
  Receive Date: 20130320
  Receipt Date: 20130412
  Transmission Date: 20140414
  Serious: Yes (Life-Threatening, Hospitalization, Disabling, Other)
  Sender: FDA-Public Use
  Company Number: SE-AMGEN-SWECT2013017222

PATIENT
  Age: 55 Year
  Sex: Female

DRUGS (4)
  1. ETANERCEPT [Suspect]
     Indication: PRODUCT USED FOR UNKNOWN INDICATION
     Dosage: 50 MG, WEEKLY
     Route: 058
     Dates: start: 19990101, end: 20121115
  2. METHOTREXATE SODIUM [Concomitant]
     Indication: POLYARTHRITIS
     Dosage: 15 MG, QWK
     Route: 048
     Dates: start: 20000118
  3. PREDNISOLONE [Concomitant]
     Indication: POLYARTHRITIS
     Dosage: 3.7 MG, 1X/DAY
     Route: 048
     Dates: start: 19990714
  4. NSAID^S [Concomitant]
     Dosage: UNK
     Dates: start: 19990714

REACTIONS (1)
  - Sepsis [Recovered/Resolved with Sequelae]
